FAERS Safety Report 7350549-7 (Version None)
Quarter: 2011Q1

REPORT INFORMATION
  Report Type: 
  Country: None (occurrence: None)
  Receive Date: 20110314
  Receipt Date: 20110309
  Transmission Date: 20110831
  Serious: Yes (Other)
  Sender: FDA-Public Use
  Company Number: CH-PFIZER INC-2011051606

PATIENT
  Age: 47 Year
  Sex: Male

DRUGS (2)
  1. TOVIAZ [Suspect]
     Dosage: UNK
     Dates: start: 20110201
  2. MARCOUMAR [Interacting]
     Dosage: UNK

REACTIONS (2)
  - THROMBOSIS [None]
  - DRUG INTERACTION [None]
